FAERS Safety Report 9361233 (Version 2)
Quarter: 2013Q3

REPORT INFORMATION
  Report Type: Report from Study
  Country: CA (occurrence: CA)
  Receive Date: 20130621
  Receipt Date: 20130723
  Transmission Date: 20140515
  Serious: Yes (Other)
  Sender: FDA-Public Use
  Company Number: CA-BRISTOL-MYERS SQUIBB COMPANY-19017888

PATIENT
  Age: 66 Year
  Sex: Female

DRUGS (6)
  1. ORENCIA [Suspect]
     Indication: RHEUMATOID ARTHRITIS
     Dosage: 1 DF: 750 UNITS NOS.?3C81662: EXP: SEP2015
     Dates: start: 20111005
  2. METHOTREXATE [Concomitant]
  3. FOLIC ACID [Concomitant]
  4. LISINOPRIL [Concomitant]
  5. HYDROCHLOROTHIAZIDE [Concomitant]
  6. HYDROXYCHLOROQUINE [Concomitant]

REACTIONS (5)
  - Tympanic membrane perforation [Unknown]
  - Eye infection [Unknown]
  - Ear pain [Unknown]
  - Nasopharyngitis [Unknown]
  - Localised infection [Unknown]
